FAERS Safety Report 6134476-9 (Version None)
Quarter: 2009Q1

REPORT INFORMATION
  Report Type: 
  Country: None (occurrence: None)
  Receive Date: 20090327
  Receipt Date: 20090318
  Transmission Date: 20090719
  Serious: Yes (Death, Other)
  Sender: FDA-Public Use
  Company Number: JP-ASTRAZENECA-2009SE01246

PATIENT
  Age: 85 Year
  Sex: Female
  Weight: 48 kg

DRUGS (10)
  1. BLOPRESS [Suspect]
     Indication: HYPERTENSION
     Route: 048
     Dates: start: 20080114, end: 20080215
  2. LANSOPRAZOLE [Concomitant]
     Route: 048
     Dates: start: 20080114, end: 20080215
  3. GLYCEROL 2.6% [Concomitant]
     Indication: CEREBRAL HAEMORRHAGE
     Route: 042
     Dates: start: 20080113, end: 20080119
  4. CALCIUM CHANNEL BLOCKERS [Concomitant]
     Indication: HYPERTENSION
     Route: 042
     Dates: start: 20080113, end: 20080114
  5. ADONA [Concomitant]
     Route: 065
     Dates: start: 20080113, end: 20080114
  6. TRANSAMIN [Concomitant]
     Route: 065
     Dates: start: 20080113, end: 20080114
  7. PRIMPERAN [Concomitant]
     Route: 065
     Dates: start: 20080113, end: 20080114
  8. EXCEGRAN [Concomitant]
     Route: 048
     Dates: start: 20080114, end: 20080215
  9. MAGMITT [Concomitant]
     Route: 048
     Dates: start: 20080119, end: 20080215
  10. ALLELOCK [Concomitant]
     Route: 048
     Dates: start: 20080128, end: 20080206

REACTIONS (2)
  - CEREBRAL HAEMORRHAGE [None]
  - PANCYTOPENIA [None]
